FAERS Safety Report 16021693 (Version 1)
Quarter: 2019Q1

REPORT INFORMATION
  Report Type: Report from Study
  Country: US (occurrence: US)
  Receive Date: 20190301
  Receipt Date: 20190301
  Transmission Date: 20190418
  Serious: Yes (Hospitalization, Other)
  Sender: FDA-Public Use
  Company Number: US-GILEAD-2019-0392351

PATIENT
  Age: 84 Year
  Sex: Male

DRUGS (5)
  1. TADALAFIL. [Concomitant]
     Active Substance: TADALAFIL
  2. UPTRAVI [Concomitant]
     Active Substance: SELEXIPAG
  3. AMBRISENTAN [Suspect]
     Active Substance: AMBRISENTAN
     Indication: PRODUCT USED FOR UNKNOWN INDICATION
     Dosage: 10 MG, QD
     Route: 065
     Dates: start: 20160217
  4. WARFARIN [Concomitant]
     Active Substance: WARFARIN
  5. ELIQUIS [Concomitant]
     Active Substance: APIXABAN

REACTIONS (2)
  - Influenza [Unknown]
  - Myocardial infarction [Unknown]
